FAERS Safety Report 17191480 (Version 3)
Quarter: 2020Q1

REPORT INFORMATION
  Report Type: Spontaneous
  Country: US (occurrence: US)
  Receive Date: 20191223
  Receipt Date: 20200109
  Transmission Date: 20200409
  Serious: No
  Sender: FDA-Public Use
  Company Number: US-PFIZER INC-2019130285

PATIENT
  Age: 55 Year
  Sex: Female

DRUGS (1)
  1. LYRICA [Suspect]
     Active Substance: PREGABALIN
     Indication: NEUROSARCOIDOSIS
     Dosage: UNK

REACTIONS (5)
  - Off label use [Unknown]
  - Intentional product use issue [Unknown]
  - Malaise [Unknown]
  - Product use in unapproved indication [Unknown]
  - Pain [Unknown]
